FAERS Safety Report 14105978 (Version 1)
Quarter: 2017Q4

REPORT INFORMATION
  Report Type: Spontaneous
  Country: US (occurrence: US)
  Receive Date: 20171019
  Receipt Date: 20171019
  Transmission Date: 20180321
  Serious: Yes (Other)
  Sender: FDA-Public Use
  Company Number: US-JNJFOC-20171013906

PATIENT
  Age: 78 Year
  Sex: Female
  Weight: 42.18 kg

DRUGS (2)
  1. IMODIUM MULTI-SYMPTOM RELIEF [Suspect]
     Active Substance: DIMETHICONE\LOPERAMIDE HYDROCHLORIDE
     Indication: GASTRIC DISORDER
     Dosage: DOSE 1/2 TO 1 CAPLET DAILY
     Route: 048
     Dates: start: 2017
  2. IMODIUM MULTI-SYMPTOM RELIEF [Suspect]
     Active Substance: DIMETHICONE\LOPERAMIDE HYDROCHLORIDE
     Indication: DIARRHOEA
     Dosage: DOSE 1/2 TO 1 CAPLET DAILY
     Route: 048
     Dates: start: 2017

REACTIONS (4)
  - Product quality issue [Unknown]
  - Product size issue [Unknown]
  - Choking [Recovered/Resolved]
  - Product use complaint [Unknown]

NARRATIVE: CASE EVENT DATE: 2017
